FAERS Safety Report 17100191 (Version 5)
Quarter: 2020Q3

REPORT INFORMATION
  Report Type: Spontaneous
  Country: IN (occurrence: IN)
  Receive Date: 20191202
  Receipt Date: 20200902
  Transmission Date: 20201102
  Serious: Yes (Other)
  Sender: FDA-Public Use
  Company Number: IN-PFIZER INC-2019404522

PATIENT
  Age: 52 Year
  Sex: Female

DRUGS (3)
  1. CRIZALK [Suspect]
     Active Substance: CRIZOTINIB
     Dosage: UNK
     Dates: start: 20181105
  2. CRIZALK [Suspect]
     Active Substance: CRIZOTINIB
     Indication: LUNG ADENOCARCINOMA
     Dosage: 250 MG, 2X/DAY
     Route: 048
     Dates: start: 20181102
  3. CRIZALK [Suspect]
     Active Substance: CRIZOTINIB
     Dosage: 250 MG, 2X/DAY
     Dates: start: 20190302

REACTIONS (8)
  - Blood pressure decreased [Unknown]
  - Vitreous floaters [Unknown]
  - Lymphadenopathy [Unknown]
  - Lipoma [Unknown]
  - Pericardial effusion [Unknown]
  - Vomiting [Unknown]
  - Pulmonary fibrosis [Unknown]
  - Hepatic cyst [Unknown]

NARRATIVE: CASE EVENT DATE: 20200204
